FAERS Safety Report 4687684-8 (Version None)
Quarter: 2005Q2

REPORT INFORMATION
  Report Type: 
  Country: None (occurrence: None)
  Receive Date: 20050610
  Receipt Date: 20050602
  Transmission Date: 20051028
  Serious: Yes (Hospitalization, Other)
  Sender: FDA-Public Use
  Company Number: JP-JNJFOC-20040502107

PATIENT
  Sex: Male

DRUGS (17)
  1. LEUSTATIN [Suspect]
     Route: 041
     Dates: start: 20030926, end: 20030930
  2. MICAFUNGIN SODIUM [Suspect]
     Route: 041
  3. MICAFUNGIN SODIUM [Suspect]
     Indication: PYREXIA
     Route: 041
  4. AMIKACIN SULFATE [Suspect]
     Route: 041
  5. AMIKACIN SULFATE [Suspect]
     Indication: PYREXIA
     Route: 041
  6. CEFOZOPRAN HYDROCHLORIDE [Suspect]
     Indication: PYREXIA
     Route: 041
     Dates: start: 20031014, end: 20031019
  7. MEROPENEM TRIHYDRATE [Suspect]
     Route: 041
  8. MEROPENEM TRIHYDRATE [Suspect]
     Indication: PYREXIA
     Route: 041
  9. CEFTAZIDIME [Suspect]
     Indication: PYREXIA
     Route: 041
     Dates: start: 20031107, end: 20031110
  10. MINOCYCLINE HYDROCHLORIDE [Suspect]
     Indication: PYREXIA
     Route: 041
     Dates: start: 20031107, end: 20031110
  11. LOXOPROFEN SODIUM [Suspect]
     Indication: PYREXIA
     Route: 049
     Dates: start: 20030926, end: 20031123
  12. FLUCONAZOLE [Concomitant]
     Indication: INFECTION PROPHYLAXIS
     Route: 049
     Dates: start: 20030926, end: 20031215
  13. SULFAMETHOXAZOLE AND TRIMETHOPRIM [Concomitant]
     Route: 049
     Dates: start: 20030926, end: 20031215
  14. SULFAMETHOXAZOLE AND TRIMETHOPRIM [Concomitant]
     Indication: INFECTION PROPHYLAXIS
     Route: 049
     Dates: start: 20030926, end: 20031215
  15. ZOPICLONE [Concomitant]
     Indication: INSOMNIA
     Route: 049
     Dates: start: 20030926, end: 20031215
  16. TEPRENONE [Concomitant]
     Route: 049
     Dates: start: 20030926, end: 20031123
  17. FAMOTIDINE [Concomitant]
     Indication: GASTRITIS
     Route: 049
     Dates: start: 20031023, end: 20031215

REACTIONS (20)
  - ANAEMIA [None]
  - ANOREXIA [None]
  - ANXIETY [None]
  - BLOOD ALKALINE PHOSPHATASE INCREASED [None]
  - C-REACTIVE PROTEIN INCREASED [None]
  - DIFFERENTIAL WHITE BLOOD CELL COUNT ABNORMAL [None]
  - ELECTROLYTE IMBALANCE [None]
  - GASTRITIS [None]
  - HEPATIC FUNCTION ABNORMAL [None]
  - HEPATIC STEATOSIS [None]
  - HEPATOCELLULAR DAMAGE [None]
  - HYPOALBUMINAEMIA [None]
  - HYPOCALCAEMIA [None]
  - HYPOPROTEINAEMIA [None]
  - INSOMNIA [None]
  - LEUKOPENIA [None]
  - PANCYTOPENIA [None]
  - PYREXIA [None]
  - THROMBOCYTOPENIA [None]
  - TRANSAMINASES INCREASED [None]
